FAERS Safety Report 10064146 (Version 1)
Quarter: 2014Q2

REPORT INFORMATION
  Report Type: Spontaneous
  Country: US (occurrence: None)
  Receive Date: 20140407
  Receipt Date: 20140407
  Transmission Date: 20141212
  Serious: Yes (Death)
  Sender: FDA-Public Use
  Company Number: None

PATIENT
  Age: 3 Year
  Sex: Female
  Weight: 14.5 kg

DRUGS (9)
  1. DEXAMETHASONE [Suspect]
  2. DOXORUBICIN HYDROCHLORIDE [Suspect]
  3. METHOTREXATE [Suspect]
     Route: 037
  4. PEG/L-ASPARAGINASE [Suspect]
     Dosage: 1575 MILLION IU
  5. VINCRISTINE SULFATE [Suspect]
  6. ACETAMINOPHEN-HYDROCODONE [Concomitant]
  7. LORAZEPM [Concomitant]
  8. ONDANSETRON [Concomitant]
  9. RANITIDINE [Concomitant]

REACTIONS (13)
  - Fatigue [None]
  - Headache [None]
  - Urine output decreased [None]
  - Hypophagia [None]
  - Vomiting [None]
  - Nausea [None]
  - Asthenia [None]
  - Pyrexia [None]
  - Cardiac arrest [None]
  - Dizziness [None]
  - Abdominal pain [None]
  - Pulse absent [None]
  - Apnoea [None]
